FAERS Safety Report 6614043-0 (Version None)
Quarter: 2010Q1

REPORT INFORMATION
  Report Type: 
  Country: None (occurrence: None)
  Receive Date: 20100304
  Receipt Date: 20100301
  Transmission Date: 20100710
  Serious: Yes (Death, Hospitalization)
  Sender: FDA-Public Use
  Company Number: JP-ASTRAZENECA-2010SE02641

PATIENT
  Age: 75 Year
  Sex: Male

DRUGS (7)
  1. ZOLADEX [Suspect]
     Indication: PROSTATE CANCER
     Route: 058
     Dates: start: 20090818, end: 20100105
  2. CASODEX [Suspect]
     Indication: PROSTATE CANCER
     Route: 048
     Dates: start: 20090806, end: 20100118
  3. LANIRAPID [Concomitant]
     Route: 048
  4. FAMOTER [Concomitant]
     Route: 048
  5. BLOPRESS [Concomitant]
     Route: 048
  6. NORVASC [Concomitant]
     Route: 048
  7. MILMAG [Concomitant]
     Route: 048

REACTIONS (1)
  - INTERSTITIAL LUNG DISEASE [None]
